FAERS Safety Report 13525835 (Version 1)
Quarter: 2017Q2

REPORT INFORMATION
  Report Type: Spontaneous
  Country: US (occurrence: US)
  Receive Date: 20170508
  Receipt Date: 20170508
  Transmission Date: 20170830
  Serious: Yes (Other)
  Sender: FDA-Public Use
  Company Number: None

PATIENT
  Age: 46 Year
  Sex: Female
  Weight: 111.68 kg

DRUGS (1)
  1. VIVELLE-DOT GENERIC 0.1MG PATCH [Suspect]
     Active Substance: ESTRADIOL
     Indication: MENOPAUSAL SYMPTOMS
     Dosage: PATCH
     Dates: start: 20170124

REACTIONS (5)
  - Hypersensitivity [None]
  - Application site pruritus [None]
  - Therapy cessation [None]
  - Application site exfoliation [None]
  - Application site erythema [None]

NARRATIVE: CASE EVENT DATE: 20170124
